FAERS Safety Report 23058275 (Version 1)
Quarter: 2023Q4

REPORT INFORMATION
  Report Type: Spontaneous
  Country: FR (occurrence: FR)
  Receive Date: 20231012
  Receipt Date: 20231012
  Transmission Date: 20240109
  Serious: Yes (Death, Hospitalization, Other)
  Sender: FDA-Public Use
  Company Number: FR-002147023-NVSC2023FR219562

PATIENT
  Sex: Male
  Weight: 76 kg

DRUGS (3)
  1. KYMRIAH [Suspect]
     Active Substance: TISAGENLECLEUCEL
     Indication: B-cell lymphoma
     Dosage: UNK UNK, ONCE/SINGLE (2.21 X 10 RAISE TO 8)
     Route: 042
     Dates: start: 20200115, end: 20200115
  2. FLUDARABINE [Concomitant]
     Active Substance: FLUDARABINE PHOSPHATE
     Indication: Lymphodepletion
     Dosage: 25 MG/M2
     Route: 042
     Dates: start: 20200110, end: 20200112
  3. CYCLOPHOSPHAMIDE [Concomitant]
     Active Substance: CYCLOPHOSPHAMIDE
     Indication: Lymphodepletion
     Dosage: 250 MG/M2
     Route: 042
     Dates: start: 20200110, end: 20200112

REACTIONS (3)
  - B-cell lymphoma [Fatal]
  - Malignant neoplasm progression [Fatal]
  - Psychomotor retardation [Recovered/Resolved]

NARRATIVE: CASE EVENT DATE: 20200116
